FAERS Safety Report 10918489 (Version 5)
Quarter: 2016Q2

REPORT INFORMATION
  Report Type: Spontaneous
  Country: US (occurrence: US)
  Receive Date: 20150316
  Receipt Date: 20160624
  Transmission Date: 20160815
  Serious: Yes (Death, Hospitalization, Other)
  Sender: FDA-Public Use
  Company Number: US-ASTELLAS-2014US021136

PATIENT
  Sex: Male

DRUGS (1)
  1. XTANDI [Suspect]
     Active Substance: ENZALUTAMIDE
     Indication: PROSTATE CANCER
     Dosage: 160 MG (40 MG X 4 CAPSULES, ONCE DAILY
     Route: 048
     Dates: start: 20140701

REACTIONS (7)
  - Death [Fatal]
  - Back pain [Unknown]
  - Paraesthesia [Unknown]
  - Urinary bladder haemorrhage [Unknown]
  - Cerebrovascular accident [Unknown]
  - Hospitalisation [Unknown]
  - Cardiac failure congestive [Unknown]
